FAERS Safety Report 8511410-5 (Version None)
Quarter: 2012Q3

REPORT INFORMATION
  Report Type: 
  Country: None (occurrence: None)
  Receive Date: 20120716
  Receipt Date: 20120706
  Transmission Date: 20120928
  Serious: Yes (Hospitalization)
  Sender: FDA-Public Use
  Company Number: US-BAYER-2012-055452

PATIENT
  Age: 20 Year
  Sex: Female
  Weight: 54.422 kg

DRUGS (6)
  1. YAZ [Suspect]
     Indication: DYSMENORRHOEA
     Dosage: UNK
     Dates: start: 20091117, end: 20100908
  2. LEXAPRO [Concomitant]
     Indication: ANXIETY
     Dosage: 10 MG, DAILY
     Dates: start: 20110505, end: 20110614
  3. LEXAPRO [Concomitant]
     Dosage: UNK
     Dates: start: 20110721
  4. YAZ [Suspect]
     Indication: ABDOMINAL PAIN
  5. YAZ [Suspect]
     Indication: MENSTRUATION IRREGULAR
  6. MUPIROCIN [Concomitant]
     Dosage: 2 %, TWICE DAILY
     Dates: start: 20110511

REACTIONS (4)
  - PULMONARY EMBOLISM [None]
  - FATIGUE [None]
  - CHEST PAIN [None]
  - DYSPNOEA [None]
